FAERS Safety Report 10148940 (Version 3)
Quarter: 2014Q2

REPORT INFORMATION
  Report Type: Report from Study
  Country: CA (occurrence: CA)
  Receive Date: 20140502
  Receipt Date: 20140606
  Transmission Date: 20141212
  Serious: Yes (Death, Other)
  Sender: FDA-Public Use
  Company Number: CA-ROCHE-1354260

PATIENT
  Age: 37 Year
  Sex: Female

DRUGS (3)
  1. HERCEPTIN [Suspect]
     Indication: HER-2 POSITIVE BREAST CANCER
     Route: 042
  2. KADCYLA [Suspect]
     Indication: HER-2 POSITIVE BREAST CANCER
     Route: 042
     Dates: start: 20140313, end: 20140403
  3. TAMOXIFEN [Concomitant]

REACTIONS (3)
  - Hepatic function abnormal [Unknown]
  - Drug ineffective [Unknown]
  - Death [Fatal]
